FAERS Safety Report 9583673 (Version 2)
Quarter: 2014Q1

REPORT INFORMATION
  Report Type: Spontaneous
  Country: US (occurrence: US)
  Receive Date: 20131002
  Receipt Date: 20140303
  Transmission Date: 20141002
  Serious: No
  Sender: FDA-Public Use
  Company Number: US-AMGEN-USASP2013048608

PATIENT
  Age: 45 Year
  Sex: Female
  Weight: 108.84 kg

DRUGS (4)
  1. ENBREL [Suspect]
     Indication: RHEUMATOID ARTHRITIS
     Dosage: 50 MG, QWK
     Route: 058
     Dates: start: 20130627
  2. XANAX [Concomitant]
     Dosage: 1 MG, UNK
  3. SAVELLA [Concomitant]
     Dosage: 12.5 MG, UNK
  4. TRAZODONE [Concomitant]
     Dosage: 150 MG, UNK

REACTIONS (3)
  - Headache [Recovering/Resolving]
  - Injection site pain [Recovering/Resolving]
  - Injection site warmth [Not Recovered/Not Resolved]
